FAERS Safety Report 8862303 (Version 2)
Quarter: 2012Q4

REPORT INFORMATION
  Report Type: Report from Study
  Country: CA (occurrence: CA)
  Receive Date: 20121026
  Receipt Date: 20121102
  Transmission Date: 20130627
  Serious: Yes (Hospitalization)
  Sender: FDA-Public Use
  Company Number: CA-JNJFOC-20121012729

PATIENT
  Age: 70 Year
  Sex: Male

DRUGS (7)
  1. SIMPONI [Suspect]
     Indication: PRODUCT USED FOR UNKNOWN INDICATION
  2. AMLODIPINE [Concomitant]
     Indication: HYPERTENSION
     Route: 048
  3. HYDROCHLOROTHIAZIDE [Concomitant]
     Indication: HYPERTENSION
     Route: 048
  4. RAMIPRIL [Concomitant]
     Indication: HYPERTENSION
     Route: 048
  5. PRADAXA [Concomitant]
     Indication: ANTICOAGULANT THERAPY
     Route: 048
  6. LIPITOR [Concomitant]
     Indication: PROPHYLAXIS
     Route: 048
  7. ASA [Concomitant]
     Indication: PROPHYLAXIS
     Route: 048

REACTIONS (2)
  - Cerebrovascular accident [Unknown]
  - Atrial fibrillation [Unknown]
